FAERS Safety Report 8385546-6 (Version None)
Quarter: 2012Q2

REPORT INFORMATION
  Report Type: 
  Country: None (occurrence: None)
  Receive Date: 20120525
  Receipt Date: 20091215
  Transmission Date: 20120825
  Serious: No
  Sender: FDA-Public Use
  Company Number: 2009BI041084

PATIENT
  Age: 41 Year
  Sex: Female

DRUGS (3)
  1. AVONEX [Concomitant]
     Route: 030
  2. TYSABRI [Suspect]
     Route: 042
     Dates: start: 20111122
  3. TYSABRI [Suspect]
     Indication: MULTIPLE SCLEROSIS
     Route: 042
     Dates: start: 20090918, end: 20100504

REACTIONS (1)
  - MELANOCYTIC NAEVUS [None]
